FAERS Safety Report 10216057 (Version 2)
Quarter: 2014Q2

REPORT INFORMATION
  Report Type: Spontaneous
  Country: JP (occurrence: JP)
  Receive Date: 20140604
  Receipt Date: 20140630
  Transmission Date: 20141212
  Serious: Yes (Hospitalization)
  Sender: FDA-Public Use
  Company Number: JP-SHIONOGI, INC-2014000505

PATIENT
  Sex: Male

DRUGS (2)
  1. FINIBAX [Suspect]
     Indication: URINARY TRACT INFECTION
     Dosage: 0.75 G, QD
     Route: 041
  2. CRAVIT [Suspect]
     Dosage: 500 MG, QD
     Route: 048

REACTIONS (1)
  - Rhabdomyolysis [Recovering/Resolving]
